FAERS Safety Report 4807292-5 (Version None)
Quarter: 2005Q4

REPORT INFORMATION
  Report Type: 
  Country: None (occurrence: None)
  Receive Date: 20051024
  Receipt Date: 20051006
  Transmission Date: 20060501
  Serious: Yes (Hospitalization)
  Sender: FDA-Public Use
  Company Number: JP-MERCK-0510USA06207

PATIENT
  Age: 80 Year
  Sex: Male

DRUGS (5)
  1. COZAAR [Suspect]
     Route: 048
  2. COZAAR [Suspect]
     Route: 048
  3. AMARYL [Concomitant]
     Route: 048
  4. AMARYL [Concomitant]
     Route: 048
  5. [THERAPY UNSPECIFIED] [Concomitant]
     Route: 065

REACTIONS (1)
  - HYPOGLYCAEMIA [None]
